FAERS Safety Report 8175444-5 (Version None)
Quarter: 2012Q1

REPORT INFORMATION
  Report Type: 
  Country: None (occurrence: None)
  Receive Date: 20120229
  Receipt Date: 20120215
  Transmission Date: 20120608
  Serious: Yes (Other)
  Sender: FDA-Public Use
  Company Number: DK-FRI-S07-DEN-01413-01

PATIENT
  Sex: Female

DRUGS (1)
  1. CITALOPRAM HYDROBROMIDE [Suspect]
     Indication: DEPRESSION
     Dosage: 40 MG
     Route: 048

REACTIONS (3)
  - FOETAL DEATH [None]
  - CHORIOAMNIONITIS [None]
  - MATERNAL EXPOSURE DURING PREGNANCY [None]
